FAERS Safety Report 15178336 (Version 1)
Quarter: 2018Q4

REPORT INFORMATION
  Report Type: Spontaneous
  Country: US (occurrence: US)
  Receive Date: 20180721
  Receipt Date: 20180721
  Transmission Date: 20190204
  Serious: No
  Sender: FDA-Public Use
  Company Number: US-ASCENT PHARMACEUTICALS, INC.-2052524

PATIENT
  Age: 68 Year
  Sex: Female

DRUGS (1)
  1. OXYCODONE AND ACETAMINOPHEN [Suspect]
     Active Substance: ACETAMINOPHEN\OXYCODONE HYDROCHLORIDE
     Indication: SPINAL COLUMN STENOSIS
     Route: 048

REACTIONS (5)
  - Nausea [Unknown]
  - Drug ineffective [Unknown]
  - Product quality issue [Unknown]
  - Abdominal discomfort [Unknown]
  - Abdominal pain upper [Unknown]
